FAERS Safety Report 15554395 (Version 3)
Quarter: 2019Q3

REPORT INFORMATION
  Report Type: Spontaneous
  Country: IT (occurrence: IT)
  Receive Date: 20181026
  Receipt Date: 20190816
  Transmission Date: 20191004
  Serious: Yes (Life-Threatening, Hospitalization, Other)
  Sender: FDA-Public Use
  Company Number: IT-AUROBINDO-AUR-APL-2018-052255

PATIENT

DRUGS (13)
  1. DEFERIPRONE [Suspect]
     Active Substance: DEFERIPRONE
     Indication: CARDIAC FAILURE
     Dosage: 75 MILLIGRAM/KILOGRAM, DAILY,75 MG/KG, QD (MINIMUM THERAPEUTIC DOSAGE)
     Route: 048
  2. DEFERIPRONE [Suspect]
     Active Substance: DEFERIPRONE
     Indication: SALVAGE THERAPY
  3. DEFERIPRONE [Suspect]
     Active Substance: DEFERIPRONE
     Indication: IRON OVERLOAD
     Dosage: 75 MILLIGRAM/KILOGRAM, DAILY
     Route: 048
  4. DEFERIPRONE [Suspect]
     Active Substance: DEFERIPRONE
     Indication: CHELATION THERAPY
  5. DEFEROXAMINE [Suspect]
     Active Substance: DEFEROXAMINE MESYLATE
     Indication: CHELATION THERAPY
  6. DEFEROXAMINE [Suspect]
     Active Substance: DEFEROXAMINE MESYLATE
     Indication: IRON OVERLOAD
     Dosage: UNK (24-HOUR/PER/DAY)
     Route: 042
  7. DEFEROXAMINE [Suspect]
     Active Substance: DEFEROXAMINE MESYLATE
     Indication: CARDIAC FAILURE
  8. WARFARIN SODIUM. [Suspect]
     Active Substance: WARFARIN SODIUM
     Indication: EMBOLISM
     Dosage: UNK
     Route: 065
  9. CARVEDILOL. [Suspect]
     Active Substance: CARVEDILOL
     Indication: EMBOLISM
     Dosage: UNINTERRUPTED IV 24-HOUR/PER/DAY
     Route: 042
  10. CARVEDILOL. [Suspect]
     Active Substance: CARVEDILOL
     Indication: ATRIAL FIBRILLATION
  11. WARFARIN SODIUM. [Suspect]
     Active Substance: WARFARIN SODIUM
     Indication: CEREBROVASCULAR ACCIDENT
  12. CARVEDILOL. [Suspect]
     Active Substance: CARVEDILOL
     Indication: CEREBROVASCULAR ACCIDENT
  13. WARFARIN SODIUM. [Suspect]
     Active Substance: WARFARIN SODIUM
     Indication: ATRIAL FIBRILLATION

REACTIONS (20)
  - Beta 2 microglobulin urine increased [Recovered/Resolved]
  - Drug-induced liver injury [Recovered/Resolved]
  - Breath sounds abnormal [Recovering/Resolving]
  - Electrolyte imbalance [Recovered/Resolved]
  - Gamma-glutamyltransferase increased [Not Recovered/Not Resolved]
  - Jaundice [Recovering/Resolving]
  - Coagulopathy [Recovered/Resolved]
  - Condition aggravated [Recovering/Resolving]
  - Glycosuria [Recovered/Resolved]
  - Model for end stage liver disease score abnormal [Recovering/Resolving]
  - Asthenia [Recovering/Resolving]
  - Hypokalaemia [Recovered/Resolved]
  - Pleural effusion [Recovering/Resolving]
  - Depressed level of consciousness [Recovered/Resolved]
  - Hepatomegaly [Recovering/Resolving]
  - Influenza like illness [Recovering/Resolving]
  - Proteinuria [Recovered/Resolved]
  - Hypophosphataemia [Recovered/Resolved]
  - Dehydration [Recovering/Resolving]
  - Renal tubular disorder [Recovered/Resolved]
